FAERS Safety Report 9623408 (Version 1)
Quarter: 2013Q4

REPORT INFORMATION
  Report Type: Spontaneous
  Country: US (occurrence: US)
  Receive Date: 20131015
  Receipt Date: 20131015
  Transmission Date: 20140711
  Serious: No
  Sender: FDA-Public Use
  Company Number: US-PURDUE-USA-2012-0087667

PATIENT
  Sex: Female

DRUGS (3)
  1. BUTRANS [Suspect]
     Indication: PAIN
     Dosage: 10 MCG/HR, UNK
     Route: 062
     Dates: start: 20120501
  2. BENADRYL                           /00000402/ [Concomitant]
     Indication: PRURITUS
     Dosage: UNK UNK, PRN
     Route: 048
     Dates: start: 20120507
  3. CLARITIN                           /00917501/ [Concomitant]
     Indication: PRURITUS
     Dosage: UNK
     Route: 048
     Dates: start: 20120507

REACTIONS (3)
  - Application site pruritus [Recovered/Resolved]
  - Product adhesion issue [Recovered/Resolved]
  - Wrong technique in drug usage process [Unknown]
